FAERS Safety Report 4709804-9 (Version None)
Quarter: 2005Q3

REPORT INFORMATION
  Report Type: 
  Country: None (occurrence: None)
  Receive Date: 20050708
  Receipt Date: 20050209
  Transmission Date: 20060218
  Serious: Yes (Disabling)
  Sender: FDA-Public Use
  Company Number: AU-MERCK-0502AUS00112

PATIENT
  Age: 72 Year
  Sex: Female

DRUGS (1)
  1. ZETIA [Suspect]
     Route: 048

REACTIONS (1)
  - AMNESIA [None]
